FAERS Safety Report 5137786-7 (Version None)
Quarter: 2006Q4

REPORT INFORMATION
  Report Type: 
  Country: None (occurrence: None)
  Receive Date: 20061030
  Receipt Date: 20060111
  Transmission Date: 20070319
  Serious: No
  Sender: FDA-Public Use
  Company Number: US-GLAXOSMITHKLINE-A0588823A

PATIENT
  Age: 71 Year
  Sex: Male

DRUGS (7)
  1. ADVAIR HFA [Suspect]
     Indication: ASTHMA
     Route: 055
  2. LIPITOR [Concomitant]
  3. CELEBREX [Concomitant]
  4. LEXAPRO [Concomitant]
  5. TOPROL-XL [Concomitant]
  6. HYDROCODONE [Concomitant]
  7. MAXAIR [Concomitant]

REACTIONS (4)
  - COUGH [None]
  - DRUG INEFFECTIVE [None]
  - DYSPNOEA [None]
  - PHARMACEUTICAL PRODUCT COMPLAINT [None]
